FAERS Safety Report 15092644 (Version 1)
Quarter: 2018Q2

REPORT INFORMATION
  Report Type: Spontaneous
  Country: US (occurrence: US)
  Receive Date: 20180629
  Receipt Date: 20180629
  Transmission Date: 20180711
  Serious: Yes (Other)
  Sender: FDA-Public Use
  Company Number: US-ELI_LILLY_AND_COMPANY-US201806010101

PATIENT
  Age: 62 Year
  Sex: Female

DRUGS (10)
  1. CRESTOR [Concomitant]
     Active Substance: ROSUVASTATIN CALCIUM
     Indication: PRODUCT USED FOR UNKNOWN INDICATION
     Dosage: UNK, UNKNOWN
     Route: 065
  2. LYRICA [Interacting]
     Active Substance: PREGABALIN
     Indication: PAIN
     Dosage: 50 MG, BID
     Route: 065
     Dates: start: 201803
  3. LYRICA [Interacting]
     Active Substance: PREGABALIN
     Dosage: 50 MG, TID
     Route: 065
  4. FLEXERIL [Concomitant]
     Active Substance: CYCLOBENZAPRINE HYDROCHLORIDE
     Indication: PRODUCT USED FOR UNKNOWN INDICATION
     Dosage: UNK, UNKNOWN
     Route: 065
  5. CYMBALTA [Interacting]
     Active Substance: DULOXETINE HYDROCHLORIDE
     Indication: ANXIETY
     Dosage: 120 MG, DAILY
     Route: 048
  6. ATIVAN [Concomitant]
     Active Substance: LORAZEPAM
     Indication: IRRITABLE BOWEL SYNDROME
     Dosage: UNK, UNKNOWN
     Route: 065
  7. CYMBALTA [Suspect]
     Active Substance: DULOXETINE HYDROCHLORIDE
     Indication: DEPRESSION
     Dosage: 120 MG, DAILY
     Route: 048
     Dates: start: 2006
  8. CYMBALTA [Interacting]
     Active Substance: DULOXETINE HYDROCHLORIDE
     Indication: PAIN
  9. LORTAB [Concomitant]
     Active Substance: ACETAMINOPHEN\HYDROCODONE BITARTRATE
     Indication: PAIN
     Dosage: UNK, UNKNOWN
     Route: 065
     Dates: start: 2013, end: 201803
  10. NITROGLYCERIN. [Concomitant]
     Active Substance: NITROGLYCERIN
     Indication: ANGINA PECTORIS
     Dosage: UNK, PRN
     Route: 065

REACTIONS (7)
  - Pain [Not Recovered/Not Resolved]
  - Depression [Not Recovered/Not Resolved]
  - Suicidal ideation [Not Recovered/Not Resolved]
  - Hyperhidrosis [Recovered/Resolved]
  - Hot flush [Not Recovered/Not Resolved]
  - Anxiety [Not Recovered/Not Resolved]
  - Bone disorder [Not Recovered/Not Resolved]

NARRATIVE: CASE EVENT DATE: 201806
